FAERS Safety Report 14169890 (Version 3)
Quarter: 2017Q4

REPORT INFORMATION
  Report Type: Report from Study
  Country: US (occurrence: US)
  Receive Date: 20171108
  Receipt Date: 20171129
  Transmission Date: 20180321
  Serious: Yes (Death, Life-Threatening, Hospitalization, Other)
  Sender: FDA-Public Use
  Company Number: US-PFIZER INC-2017464583

PATIENT
  Age: 25 Year
  Sex: Female
  Weight: 101 kg

DRUGS (31)
  1. ZOVIRAX [Concomitant]
     Active Substance: ACYCLOVIR
     Indication: PROPHYLAXIS
     Dosage: 1600 MG, (FORMULATION: 800MG) 1T BID
     Route: 048
     Dates: start: 20170215, end: 20170719
  2. SUBLIMAZE [Concomitant]
     Active Substance: FENTANYL CITRATE
     Indication: PAIN
     Dosage: 125 ML, UNK
     Route: 042
     Dates: start: 20170728, end: 20170805
  3. BESPONSA [Suspect]
     Active Substance: INOTUZUMAB OZOGAMICIN
     Indication: ACUTE LYMPHOCYTIC LEUKAEMIA
     Dosage: 0.5 MG/M2, ONCE A WEEK FOR THREE WEEKS.
     Route: 042
     Dates: start: 20170526, end: 20170710
  4. MERREM [Concomitant]
     Active Substance: MEROPENEM
     Indication: SEPSIS
     Dosage: 500 MG, (500MG/100ML), 100ML/HR OVER 60MINUTES EVERY 6HRS
     Route: 042
     Dates: start: 20170725, end: 20170730
  5. LANTUS [Concomitant]
     Active Substance: INSULIN GLARGINE
     Indication: HYPERGLYCAEMIA
     Dosage: SLIDING SCALE, FORMULATION: 100U/ML
     Dates: start: 20160910
  6. LEVAQUIN [Concomitant]
     Active Substance: LEVOFLOXACIN
     Indication: PROPHYLAXIS
     Dosage: 500 MG, (FORMULATION: 500MG) 1T QD
     Route: 048
     Dates: start: 20160912, end: 20170623
  7. AUGMENTIN [Concomitant]
     Active Substance: AMOXICILLIN\CLAVULANATE POTASSIUM
     Indication: SWELLING FACE
     Dosage: [AMOXICILLIN 875MG]/[CLAVULANATE 125MG], (FORMULATION: 875-125MG, FREQUENCY) 1T BID FOR 10 DAYS
     Route: 048
     Dates: start: 20170712, end: 20170722
  8. LEXAPRO [Concomitant]
     Active Substance: ESCITALOPRAM OXALATE
     Dosage: 5 MG, NIGHTLY
     Route: 048
     Dates: start: 20170714, end: 20170805
  9. ULTRAME [Concomitant]
     Indication: PAIN
     Dosage: 100 MG, 2T Q6H PRN
     Route: 048
     Dates: start: 20170130, end: 20170615
  10. MAXIPIME [Concomitant]
     Active Substance: CEFEPIME HYDROCHLORIDE
     Indication: SEPSIS
     Dosage: 2 G, 2 Q Q8H
     Route: 042
     Dates: start: 20170724, end: 20170725
  11. CELEBREX [Concomitant]
     Active Substance: CELECOXIB
     Indication: OSTEONECROSIS
     Dosage: 100 MG, 3X/DAY
     Route: 048
     Dates: start: 20170719, end: 20170805
  12. NEURONTIN [Concomitant]
     Active Substance: GABAPENTIN
     Indication: PAIN IN EXTREMITY
     Dosage: 600 MG, 3X/DAY
     Route: 048
     Dates: start: 20170714, end: 20170805
  13. VOLTAREN [Concomitant]
     Active Substance: DICLOFENAC SODIUM
     Indication: ARTHRALGIA
     Dosage: 4 G, QID PRN
     Route: 061
     Dates: start: 20170615, end: 20170805
  14. AREDIA [Concomitant]
     Active Substance: PAMIDRONATE DISODIUM
     Indication: HYPERKALAEMIA
     Dosage: 60 MG, (FORMULATION: 60MG/250ML) 62.5ML/HR OVER 4 HOURS
     Route: 042
     Dates: start: 20170727, end: 20170728
  15. ZANTAC [Concomitant]
     Active Substance: RANITIDINE HYDROCHLORIDE
     Indication: GASTROOESOPHAGEAL REFLUX DISEASE
     Dosage: 150 MG, 1 T BID
     Route: 048
     Dates: start: 20170615, end: 20170805
  16. PERI-COLACE [Concomitant]
     Active Substance: CASANTHRANOL\DOCUSATE SODIUM
     Indication: CONSTIPATION
     Dosage: 2 T BID
     Route: 048
     Dates: start: 20161017, end: 20170805
  17. ACTIGALL [Concomitant]
     Active Substance: URSODIOL
     Indication: PROPHYLAXIS
     Dosage: 900 MG, (FORMULATION: 300MG) 1T TID
     Route: 048
     Dates: start: 20170526
  18. DELTASONE [Concomitant]
     Active Substance: PREDNISONE
     Dosage: 100 MG, (FORMULATION: 50MG) 2T QD
     Route: 048
     Dates: start: 20170523, end: 20170615
  19. HUMALOG [Concomitant]
     Active Substance: INSULIN LISPRO
     Indication: HYPERGLYCAEMIA
     Dosage: DOSE: SLIDING SCALE, FORMULATION: 100U/ML, ROUTE: INJECTION
     Dates: start: 20160910, end: 20170627
  20. ATIVAN [Concomitant]
     Active Substance: LORAZEPAM
     Indication: NAUSEA
     Dosage: 0.25 TO 1 ML  Q2H PRN
     Route: 042
     Dates: start: 20170730, end: 20170805
  21. VANCOCIN [Concomitant]
     Active Substance: VANCOMYCIN HYDROCHLORIDE
     Indication: SEPSIS
     Dosage: 500 MG, (FORMULATION: 125MG) 1T QID FOR 6 DAYS
     Route: 048
     Dates: start: 20170523, end: 20170529
  22. ZOFRAN [Concomitant]
     Active Substance: ONDANSETRON HYDROCHLORIDE
     Indication: NAUSEA
     Dosage: 4 ML, Q8H PRN
     Dates: start: 20170724, end: 20170805
  23. COMPAZINE [Concomitant]
     Active Substance: PROCHLORPERAZINE MALEATE
     Indication: NAUSEA
     Dosage: 10 MG, 1 T Q6H
     Route: 048
     Dates: start: 20170714, end: 20170805
  24. LIDODERM [Concomitant]
     Active Substance: LIDOCAINE
     Indication: ARTHRALGIA
     Dosage: 5% PATCH, APPLY 2 PATCHES Q 24HR
     Route: 061
     Dates: start: 20170615, end: 20170805
  25. BACTRIM DS [Concomitant]
     Active Substance: SULFAMETHOXAZOLE\TRIMETHOPRIM
     Dosage: [SULFAMETHOXAZOLE 800MG]/[TRIMETHOPRIM 160MG], 1 T BID ON SATURDAYS AND SUNDAYS
     Route: 048
     Dates: start: 20170215, end: 20170704
  26. PRILOSEC [Concomitant]
     Active Substance: OMEPRAZOLE MAGNESIUM
     Indication: GASTROOESOPHAGEAL REFLUX DISEASE
     Dosage: 20 MG, (FORMULATION: 20MG) 1C QD
     Route: 048
     Dates: start: 20170509
  27. ROXICODONE [Concomitant]
     Active Substance: OXYCODONE HYDROCHLORIDE
     Indication: PAIN
     Dosage: 5 MG, (FORMULATION: 5MG) 1T Q4H PRN
     Route: 048
     Dates: start: 20170523, end: 20170615
  28. DECADRON [Concomitant]
     Active Substance: DEXAMETHASONE
     Indication: HISTIOCYTOSIS HAEMATOPHAGIC
     Dosage: 20 MG, (FORMULATION: 20MG/50ML) 20MG QD OVER 15 MINUTES
     Route: 042
     Dates: start: 20170729, end: 20170730
  29. ZANAFLEX [Concomitant]
     Active Substance: TIZANIDINE HYDROCHLORIDE
     Indication: OSTEONECROSIS
     Dosage: 2 MG, 1-2 T TID PRN
     Route: 048
  30. PROVERA [Concomitant]
     Active Substance: MEDROXYPROGESTERONE ACETATE
     Indication: AMENORRHOEA
     Dosage: 10 MG, (FORMULATION: 10MG) 1T QD
     Route: 048
     Dates: start: 20160907
  31. K-DUR [Concomitant]
     Active Substance: POTASSIUM CHLORIDE
     Indication: HYPOKALAEMIA
     Dosage: 40-80 MEQ PRN
     Route: 048
     Dates: start: 20170725, end: 20170730

REACTIONS (28)
  - Aspartate aminotransferase increased [Recovered/Resolved]
  - Pyrexia [Not Recovered/Not Resolved]
  - Hypertension [Recovered/Resolved]
  - Headache [Recovered/Resolved]
  - Vomiting [Not Recovered/Not Resolved]
  - Acute hepatic failure [Not Recovered/Not Resolved]
  - Tachycardia [Recovered/Resolved]
  - Decreased appetite [Not Recovered/Not Resolved]
  - Fatigue [Not Recovered/Not Resolved]
  - Hypercalcaemia [Recovered/Resolved]
  - Arthralgia [Unknown]
  - Encephalopathy [Not Recovered/Not Resolved]
  - Insomnia [Recovered/Resolved]
  - White blood cell count decreased [Not Recovered/Not Resolved]
  - Swelling face [Recovered/Resolved]
  - Osteonecrosis [Not Recovered/Not Resolved]
  - Escherichia bacteraemia [Recovered/Resolved]
  - Hypoxia [Recovered/Resolved]
  - Hypokalaemia [Recovered/Resolved]
  - Neutrophil count decreased [Recovered/Resolved]
  - Epistaxis [Recovered/Resolved]
  - Blood lactic acid [Not Recovered/Not Resolved]
  - Arthralgia [Recovered/Resolved]
  - Neoplasm progression [Fatal]
  - Sepsis [Not Recovered/Not Resolved]
  - Nausea [Not Recovered/Not Resolved]
  - Myalgia [Not Recovered/Not Resolved]
  - Pain in extremity [Not Recovered/Not Resolved]

NARRATIVE: CASE EVENT DATE: 20170526
